FAERS Safety Report 9025249 (Version 1)
Quarter: 2013Q1

REPORT INFORMATION
  Report Type: Spontaneous
  Country: JP (occurrence: JP)
  Receive Date: 20130122
  Receipt Date: 20130122
  Transmission Date: 20140127
  Serious: Yes (Hospitalization, Other)
  Sender: FDA-Public Use
  Company Number: JP-PFIZER INC-2013020491

PATIENT
  Age: 75 Year
  Sex: Male

DRUGS (2)
  1. METHYLPREDNISOLONE [Suspect]
     Indication: ACUTE RESPIRATORY FAILURE
     Dosage: 60 MG/DAY
     Dates: start: 20120430
  2. METHYLPREDNISOLONE [Suspect]
     Dosage: 30 MG/DAY
     Dates: start: 20120511

REACTIONS (2)
  - Thrombotic thrombocytopenic purpura [Recovering/Resolving]
  - Rhabdomyolysis [Unknown]
